FAERS Safety Report 6988177-5 (Version None)
Quarter: 2010Q3

REPORT INFORMATION
  Report Type: 
  Country: None (occurrence: None)
  Receive Date: 20100916
  Receipt Date: 20100907
  Transmission Date: 20110219
  Serious: Yes (Other)
  Sender: FDA-Public Use
  Company Number: US-ROCHE-576696

PATIENT
  Sex: Male
  Weight: 77.1 kg

DRUGS (8)
  1. ACCUTANE [Suspect]
     Indication: ACNE
     Route: 048
     Dates: start: 19960318
  2. ACCUTANE [Suspect]
     Route: 048
     Dates: start: 19960513, end: 19960731
  3. ACCUTANE [Suspect]
     Dosage: 20 MG IN MORNING AND 40 MG IN EVENING
     Route: 048
     Dates: start: 19971029
  4. ACCUTANE [Suspect]
     Route: 048
     Dates: start: 19971206
  5. ACCUTANE [Suspect]
     Route: 048
     Dates: start: 19980103, end: 19980317
  6. ACCUTANE [Suspect]
     Route: 048
     Dates: start: 20000905
  7. ACCUTANE [Suspect]
     Route: 048
     Dates: start: 20001215, end: 20010330
  8. ACCUTANE [Suspect]
     Route: 048
     Dates: start: 20030101

REACTIONS (5)
  - ACNE [None]
  - COLITIS ULCERATIVE [None]
  - INFLAMMATORY BOWEL DISEASE [None]
  - INTESTINAL OBSTRUCTION [None]
  - PROCTITIS ULCERATIVE [None]
